FAERS Safety Report 21702103 (Version 2)
Quarter: 2023Q2

REPORT INFORMATION
  Report Type: Report from Study
  Country: US (occurrence: US)
  Receive Date: 20221208
  Receipt Date: 20230407
  Transmission Date: 20230721
  Serious: No
  Sender: FDA-Public Use
  Company Number: US-ABBVIE-4192824

PATIENT
  Sex: Female

DRUGS (2)
  1. RINVOQ [Suspect]
     Active Substance: UPADACITINIB
     Indication: Rheumatoid arthritis
     Dosage: FORM STRENGTH: 15 MILLIGRAM
     Route: 048
  2. RINVOQ [Suspect]
     Active Substance: UPADACITINIB
     Indication: Rheumatoid arthritis
     Route: 048
     Dates: start: 202207

REACTIONS (5)
  - Musculoskeletal stiffness [Recovering/Resolving]
  - Therapeutic product effect delayed [Recovering/Resolving]
  - Hand deformity [Recovering/Resolving]
  - Finger deformity [Recovering/Resolving]
  - Pain in extremity [Recovering/Resolving]
